FAERS Safety Report 4881789-4 (Version None)
Quarter: 2006Q1

REPORT INFORMATION
  Report Type: 
  Country: None (occurrence: None)
  Receive Date: 20060112
  Receipt Date: 20060112
  Transmission Date: 20060701
  Serious: Yes (Hospitalization)
  Sender: FDA-Public Use
  Company Number: None

PATIENT
  Age: 83 Year
  Sex: Male
  Weight: 70.9 kg

DRUGS (2)
  1. GATIFLOXACIN [Suspect]
     Indication: URINARY TRACT INFECTION
     Dosage: 400MG QD PO
     Route: 048
     Dates: start: 20051117, end: 20051122
  2. LEVOFLOXACIN [Suspect]
     Indication: URINARY TRACT INFECTION
     Dosage: 250MG QD PO
     Route: 048
     Dates: start: 20051103, end: 20051114

REACTIONS (2)
  - APPENDIX DISORDER [None]
  - CLOSTRIDIUM COLITIS [None]
